FAERS Safety Report 6452738-2 (Version None)
Quarter: 2009Q4

REPORT INFORMATION
  Report Type: 
  Country: None (occurrence: None)
  Receive Date: 20091116
  Receipt Date: 20091102
  Transmission Date: 20100525
  Serious: Yes (Life-Threatening, Hospitalization)
  Sender: FDA-Public Use
  Company Number: 8052817

PATIENT
  Age: 62 Year
  Sex: Male

DRUGS (9)
  1. KEPPRA [Suspect]
     Dosage: PO
     Route: 048
     Dates: start: 20090601, end: 20090921
  2. ROCEPHIN [Suspect]
     Indication: ENDOCARDITIS
     Dosage: 2 G /D; IV
     Route: 042
     Dates: start: 20090826, end: 20090827
  3. ROCEPHIN [Suspect]
     Indication: ENDOCARDITIS
     Dosage: 4 G/D; IV
     Route: 042
     Dates: start: 20090828, end: 20090921
  4. MEDROL [Concomitant]
  5. DETENSIEL [Concomitant]
  6. DIGOXIN [Concomitant]
  7. GENTALLINE [Concomitant]
  8. TAVANIC [Concomitant]
  9. RIFAMPICIN [Concomitant]

REACTIONS (11)
  - ABDOMINAL PAIN UPPER [None]
  - AGRANULOCYTOSIS [None]
  - BRAIN ABSCESS [None]
  - DYSGEUSIA [None]
  - ENDOCARDITIS [None]
  - HAEMOGLOBIN DECREASED [None]
  - HYPOKALAEMIA [None]
  - RENAL FAILURE [None]
  - STAPHYLOCOCCAL SEPSIS [None]
  - URTICARIA [None]
  - VOMITING [None]
